FAERS Safety Report 6990386-6 (Version None)
Quarter: 2010Q3

REPORT INFORMATION
  Report Type: 
  Country: None (occurrence: None)
  Receive Date: 20100916
  Receipt Date: 20100608
  Transmission Date: 20110219
  Serious: Yes (Other)
  Sender: FDA-Public Use
  Company Number: AU-PFIZER INC-2010071852

PATIENT
  Age: 61 Year
  Sex: Female

DRUGS (4)
  1. LYRICA [Suspect]
     Indication: NEURALGIA
     Dosage: 75 MG IN THE MORNING AND ONE IN THE NIGHT
  2. NEURONTIN [Suspect]
     Dosage: 300 MG, 3X/DAY
  3. OXYCONTIN [Concomitant]
     Dosage: 30 MG, 1X/DAY
  4. XANAX [Concomitant]
     Dosage: 500 UG, 6X/DAY

REACTIONS (10)
  - EYE SWELLING [None]
  - GAIT DISTURBANCE [None]
  - HEAD INJURY [None]
  - JOINT DISLOCATION [None]
  - LOSS OF CONSCIOUSNESS [None]
  - RIB FRACTURE [None]
  - ROAD TRAFFIC ACCIDENT [None]
  - SOMNOLENCE [None]
  - STERNAL FRACTURE [None]
  - SWELLING FACE [None]
